FAERS Safety Report 18575518 (Version 1)
Quarter: 2020Q4

REPORT INFORMATION
  Report Type: Spontaneous
  Country: FI (occurrence: FI)
  Receive Date: 20201203
  Receipt Date: 20201203
  Transmission Date: 20210114
  Serious: Yes (Disabling)
  Sender: FDA-Public Use
  Company Number: FI-JNJFOC-20201150207

PATIENT
  Age: 51 Year
  Sex: Female

DRUGS (4)
  1. REMICADE [Suspect]
     Active Substance: INFLIXIMAB
     Indication: CROHN^S DISEASE
     Route: 042
     Dates: start: 20190220
  2. ZESSLY [Suspect]
     Active Substance: INFLIXIMAB
     Indication: CROHN^S DISEASE
     Route: 042
     Dates: start: 20200420, end: 20200714
  3. QLAIRA [Concomitant]
     Active Substance: DIENOGEST\ESTRADIOL VALERATE
     Indication: CONTRACEPTION
     Route: 048
  4. IMUREL [AZATHIOPRINE] [Concomitant]
     Active Substance: AZATHIOPRINE
     Indication: CROHN^S DISEASE
     Dosage: DAILY
     Route: 048
     Dates: start: 2000

REACTIONS (21)
  - Skin sensitisation [Recovering/Resolving]
  - Feeling abnormal [Recovering/Resolving]
  - Abdominal distension [Recovering/Resolving]
  - Arthralgia [Recovering/Resolving]
  - Pain [Recovering/Resolving]
  - Alopecia [Recovering/Resolving]
  - Diarrhoea [Recovering/Resolving]
  - Fatigue [Recovering/Resolving]
  - Abdominal pain [Recovering/Resolving]
  - Weight decreased [Recovering/Resolving]
  - Skin burning sensation [Recovering/Resolving]
  - Rhinitis allergic [Recovering/Resolving]
  - Photosensitivity reaction [Recovering/Resolving]
  - Decreased appetite [Recovering/Resolving]
  - Sneezing [Recovering/Resolving]
  - Melanocytic naevus [Recovering/Resolving]
  - Nasopharyngitis [Recovering/Resolving]
  - Nausea [Recovering/Resolving]
  - Muscle rigidity [Recovering/Resolving]
  - Pyrexia [Recovering/Resolving]
  - Erythema [Recovering/Resolving]

NARRATIVE: CASE EVENT DATE: 20200422
